FAERS Safety Report 10487391 (Version 1)
Quarter: 2014Q4

REPORT INFORMATION
  Report Type: Spontaneous
  Country: DE (occurrence: DE)
  Receive Date: 20141001
  Receipt Date: 20141001
  Transmission Date: 20150528
  Serious: Yes (Other)
  Sender: FDA-Public Use
  Company Number: DE-PFIZER INC-2014265989

PATIENT
  Age: 25 Year
  Sex: Female

DRUGS (1)
  1. SAYANA [Suspect]
     Active Substance: MEDROXYPROGESTERONE
     Indication: CONTRACEPTION
     Dosage: (104 MG/0.65 ML), UNK
     Route: 030
     Dates: start: 2010

REACTIONS (4)
  - Humerus fracture [Recovered/Resolved]
  - Radius fracture [Unknown]
  - Fall [Unknown]
  - Incorrect route of drug administration [Unknown]

NARRATIVE: CASE EVENT DATE: 20140623
